FAERS Safety Report 6219253-2 (Version None)
Quarter: 2009Q2

REPORT INFORMATION
  Report Type: 
  Country: None (occurrence: None)
  Receive Date: 20090609
  Receipt Date: 20090601
  Transmission Date: 20091009
  Serious: Yes (Hospitalization, Other)
  Sender: FDA-Public Use
  Company Number: IT-ROCHE-635895

PATIENT
  Age: 74 Year
  Sex: Female

DRUGS (3)
  1. CAPECITABINE [Suspect]
     Indication: RECTOSIGMOID CANCER
     Route: 065
     Dates: start: 20070501, end: 20080801
  2. CAPECITABINE [Suspect]
     Dosage: FOR THREE CYCLES
     Route: 065
     Dates: start: 20081001
  3. ZOLEDRONIC ACID [Suspect]
     Indication: RECTOSIGMOID CANCER
     Route: 065
     Dates: start: 20070501, end: 20080801

REACTIONS (2)
  - MALIGNANT NEOPLASM PROGRESSION [None]
  - SEPSIS [None]
